FAERS Safety Report 18991562 (Version 1)
Quarter: 2021Q1

REPORT INFORMATION
  Report Type: Spontaneous
  Country: US (occurrence: US)
  Receive Date: 20210304
  Receipt Date: 20210304
  Transmission Date: 20210420
  Serious: Yes (Hospitalization)
  Sender: FDA-Public Use
  Company Number: None

PATIENT
  Age: 60 Year
  Sex: Female

DRUGS (14)
  1. MECLIZINE [Concomitant]
     Active Substance: MECLIZINE HYDROCHLORIDE
     Dates: start: 20201215
  2. ALLOPURINOL. [Concomitant]
     Active Substance: ALLOPURINOL
     Dates: start: 20190716
  3. ASPIRIN LOW DOSE [Concomitant]
     Active Substance: ASPIRIN
     Dates: start: 20190926
  4. SOTALOL. [Concomitant]
     Active Substance: SOTALOL
     Dates: start: 20190809
  5. VITAMIN D3 [Concomitant]
     Active Substance: CHOLECALCIFEROL
     Dates: start: 20201217
  6. ALENDRONATE [Concomitant]
     Active Substance: ALENDRONATE SODIUM
     Dates: start: 20190405
  7. HYDROXYCHLOR [Concomitant]
     Active Substance: HYDROXYCHLOROQUINE
     Dates: start: 20190616
  8. OMEPRAZOLE. [Concomitant]
     Active Substance: OMEPRAZOLE
     Dates: start: 20200117
  9. METOPROLOL TARTRATE. [Concomitant]
     Active Substance: METOPROLOL TARTRATE
     Dates: start: 20190211
  10. TORSEMIDE. [Concomitant]
     Active Substance: TORSEMIDE
     Dates: start: 20190306
  11. FEROSULFATE [Concomitant]
     Dates: start: 20190405
  12. SILDENAFIL. [Suspect]
     Active Substance: SILDENAFIL
     Indication: PULMONARY HYPERTENSION
     Route: 048
     Dates: start: 20170428
  13. OYSCO [Concomitant]
     Dates: start: 20190716
  14. LEVOTHYROXINE. [Concomitant]
     Active Substance: LEVOTHYROXINE
     Dates: start: 20190804

REACTIONS (3)
  - Cerebrovascular accident [None]
  - Device failure [None]
  - Catheterisation venous [None]

NARRATIVE: CASE EVENT DATE: 20210210
